FAERS Safety Report 15996591 (Version 1)
Quarter: 2019Q1

REPORT INFORMATION
  Report Type: Spontaneous
  Country: US (occurrence: US)
  Receive Date: 20190222
  Receipt Date: 20190222
  Transmission Date: 20190418
  Serious: Yes (Other)
  Sender: FDA-Public Use
  Company Number: US-ASTRAZENECA-2019SE26511

PATIENT
  Sex: Female
  Weight: 95.7 kg

DRUGS (5)
  1. GLUCOPHAGE [Suspect]
     Active Substance: METFORMIN HYDROCHLORIDE
     Indication: DIABETES MELLITUS
     Route: 048
     Dates: start: 20180125
  2. LETROZOLE. [Suspect]
     Active Substance: LETROZOLE
     Indication: DIABETES MELLITUS
     Route: 048
     Dates: start: 20180120
  3. BYETTA [Suspect]
     Active Substance: EXENATIDE
     Route: 065
  4. IBRANCE [Suspect]
     Active Substance: PALBOCICLIB
     Indication: BREAST CANCER FEMALE
     Route: 048
     Dates: start: 20180125
  5. SINGULAIR [Concomitant]
     Active Substance: MONTELUKAST SODIUM
     Indication: PULMONARY HYPERTENSION
     Route: 048

REACTIONS (4)
  - Blood glucose increased [Not Recovered/Not Resolved]
  - Loss of personal independence in daily activities [Unknown]
  - White blood cell count abnormal [Unknown]
  - Blood glucose decreased [Unknown]
